FAERS Safety Report 5093954-4 (Version None)
Quarter: 2006Q3

REPORT INFORMATION
  Report Type: 
  Country: None (occurrence: None)
  Receive Date: 20060830
  Receipt Date: 20060830
  Transmission Date: 20061208
  Serious: Yes (Life-Threatening, Hospitalization)
  Sender: FDA-Public Use
  Company Number: None

PATIENT
  Age: 65 Year
  Sex: Male
  Weight: 316.6 kg

DRUGS (1)
  1. CETUXIMAB 2 MG/ML IMCLONE SYSTEMS, INC. [Suspect]
     Indication: LARYNGEAL CANCER
     Dosage: 80 MG CONTINUOUS IV DRIP
     Route: 041

REACTIONS (6)
  - CARDIO-RESPIRATORY ARREST [None]
  - DYSPNOEA [None]
  - ELECTROMECHANICAL DISSOCIATION [None]
  - INFUSION RELATED REACTION [None]
  - RESPIRATORY DISORDER [None]
  - SWELLING [None]
